FAERS Safety Report 21355941 (Version 1)
Quarter: 2022Q3

REPORT INFORMATION
  Report Type: Report from Study
  Country: PH (occurrence: PH)
  Receive Date: 20220920
  Receipt Date: 20220920
  Transmission Date: 20221027
  Serious: Yes (Hospitalization)
  Sender: FDA-Public Use
  Company Number: PH-NOVARTISPH-NVSC2022PH211874

PATIENT
  Age: 47 Year
  Sex: Female

DRUGS (13)
  1. ENTRESTO [Suspect]
     Active Substance: SACUBITRIL\VALSARTAN
     Indication: Product used for unknown indication
     Dosage: 200 MG, BID (AFTER MEALS)
     Route: 048
  2. CARVEDILOL [Concomitant]
     Active Substance: CARVEDILOL
     Indication: Product used for unknown indication
     Dosage: 1 DOSAGE FORM, BID
     Route: 065
  3. SEVELAMER [Concomitant]
     Active Substance: SEVELAMER
     Indication: Product used for unknown indication
     Dosage: 1 DOSAGE FORM, BID (WITH MEALS)
     Route: 065
  4. PRENAT [Concomitant]
     Indication: Product used for unknown indication
     Dosage: 1 DOSAGE FORM, TID (186MG/400MCG)( 2 HOURS AFTER MEALS)
     Route: 065
  5. TMZ MR [Concomitant]
     Indication: Product used for unknown indication
     Dosage: 1 DOSAGE FORM, BID (AFTER MEALS)
     Route: 065
  6. CATAPRES [Concomitant]
     Active Substance: CLONIDINE HYDROCHLORIDE
     Indication: Product used for unknown indication
     Dosage: 1 DOSAGE FORM (UNDER THE TONGUE IF BP} 160/90)
     Route: 065
  7. CALCIUM CARBONATE [Concomitant]
     Active Substance: CALCIUM CARBONATE
     Indication: Product used for unknown indication
     Dosage: 1 DOSAGE FORM, TID
     Route: 065
  8. CYANOCOBALAMIN\PYRIDOXAMINE HYDROCHLORIDE\THIAMINE HYDROCHLORIDE [Concomitant]
     Active Substance: CYANOCOBALAMIN\PYRIDOXAMINE HYDROCHLORIDE\THIAMINE HYDROCHLORIDE
     Indication: Product used for unknown indication
     Dosage: 1 DOSAGE FORM, QD (AFTER BREAKFAST)
     Route: 065
  9. CLOVIX [Concomitant]
     Indication: Product used for unknown indication
     Dosage: 1 DOSAGE FORM, QD (AFTER LUNCH)
     Route: 065
  10. FOLIC ACID [Concomitant]
     Active Substance: FOLIC ACID
     Indication: Product used for unknown indication
     Dosage: 1 DOSAGE FORM, QD
     Route: 065
  11. ISORDIL [Concomitant]
     Active Substance: ISOSORBIDE DINITRATE
     Indication: Chest pain
     Dosage: 1 DOSAGE FORM (1 TAB UNDER THE TONGUE AS NEEDED FOR CHEST PAIN, MAY REPEAT FOR 3 CONSECUTIVE DOSES,
     Route: 065
  12. FEBUXOSTAT [Concomitant]
     Active Substance: FEBUXOSTAT
     Indication: Product used for unknown indication
     Dosage: 1 DOSAGE FORM, QD
     Route: 065
  13. ROSUVASTATIN [Concomitant]
     Active Substance: ROSUVASTATIN
     Indication: Product used for unknown indication
     Dosage: 1 DOSAGE FORM, QD (AT BEDTIME)
     Route: 065

REACTIONS (1)
  - COVID-19 [Unknown]
